FAERS Safety Report 20910222 (Version 1)
Quarter: 2022Q2

REPORT INFORMATION
  Report Type: Report from Study
  Country: US (occurrence: US)
  Receive Date: 20220603
  Receipt Date: 20220603
  Transmission Date: 20220721
  Serious: Yes (Hospitalization, Other)
  Sender: FDA-Public Use
  Company Number: US-HLS-202200432

PATIENT

DRUGS (1)
  1. CLOZAPINE [Suspect]
     Active Substance: CLOZAPINE
     Indication: Product used for unknown indication
     Dosage: SINCE JUNE 2021
     Route: 065

REACTIONS (3)
  - Neutropenia [Unknown]
  - Oesophageal carcinoma [Unknown]
  - Leukopenia [Unknown]
